FAERS Safety Report 8103866-7 (Version None)
Quarter: 2012Q1

REPORT INFORMATION
  Report Type: 
  Country: None (occurrence: None)
  Receive Date: 20120201
  Receipt Date: 20120117
  Transmission Date: 20120608
  Serious: Yes (Other)
  Sender: FDA-Public Use
  Company Number: BR-WATSON-2012-01122

PATIENT
  Age: 54 Year
  Sex: Female

DRUGS (6)
  1. PACLITAXEL [Suspect]
     Indication: METASTASES TO LIVER
  2. CARBOPLATIN [Suspect]
     Indication: METASTASES TO BONE
     Route: 065
  3. DOCETAXEL [Suspect]
     Indication: METASTASES TO LIVER
  4. PACLITAXEL [Suspect]
     Indication: METASTASES TO BONE
     Route: 065
  5. DOCETAXEL [Suspect]
     Indication: METASTASES TO BONE
     Route: 065
  6. CARBOPLATIN [Suspect]
     Indication: METASTASES TO LIVER

REACTIONS (8)
  - SKIN BURNING SENSATION [None]
  - INJECTION SITE PHLEBITIS [None]
  - DYSAESTHESIA [None]
  - SKIN HYPERPIGMENTATION [None]
  - PIGMENTATION DISORDER [None]
  - ERYTHEMA [None]
  - SKIN EXFOLIATION [None]
  - CHLOASMA [None]
